FAERS Safety Report 21518793 (Version 1)
Quarter: 2022Q4

REPORT INFORMATION
  Report Type: Spontaneous
  Country: CA (occurrence: CA)
  Receive Date: 20221028
  Receipt Date: 20221028
  Transmission Date: 20230113
  Serious: Yes (Life-Threatening)
  Sender: FDA-Public Use
  Company Number: CA-009507513-2210CAN008772

PATIENT
  Age: 84 Year
  Sex: Male

DRUGS (4)
  1. INVANZ [Suspect]
     Active Substance: ERTAPENEM SODIUM
     Indication: Diabetic foot infection
     Dosage: 1 GRAM, EVERY 1 DAYS
     Route: 042
  2. CIPROFLOXACIN [Suspect]
     Active Substance: CIPROFLOXACIN
     Indication: Diabetic foot infection
     Dosage: 500 MILLIGRAM, 2 EVERY 1 DAYS
     Route: 048
  3. CLOXACILLIN [Concomitant]
     Active Substance: CLOXACILLIN
     Indication: Diabetic foot infection
     Dosage: UNK
     Route: 048
  4. RAMIPRIL [Concomitant]
     Active Substance: RAMIPRIL
     Indication: Product used for unknown indication
     Dosage: UNK

REACTIONS (1)
  - Drug ineffective [Unknown]
